FAERS Safety Report 5440933-0 (Version None)
Quarter: 2007Q3

REPORT INFORMATION
  Report Type: 
  Country: None (occurrence: None)
  Receive Date: 20070831
  Receipt Date: 20070820
  Transmission Date: 20080115
  Serious: Yes (Other)
  Sender: FDA-Public Use
  Company Number: US-PFIZER INC-2006125731

PATIENT
  Sex: Male

DRUGS (3)
  1. CELEBREX [Suspect]
     Indication: ARTHRITIS
     Dates: start: 20000515, end: 20010227
  2. BEXTRA [Suspect]
  3. VIOXX [Suspect]
     Dates: start: 20010308, end: 20031105

REACTIONS (2)
  - CARDIOVASCULAR DISORDER [None]
  - DEPRESSION [None]
